FAERS Safety Report 4684345-6 (Version None)
Quarter: 2005Q2

REPORT INFORMATION
  Report Type: 
  Country: None (occurrence: None)
  Receive Date: 20050531
  Receipt Date: 20040715
  Transmission Date: 20051028
  Serious: Yes (Hospitalization)
  Sender: FDA-Public Use
  Company Number: 200415363US

PATIENT
  Sex: Female

DRUGS (3)
  1. LOVENOX [Suspect]
     Indication: BONE GRAFT
     Dosage: 30 MG BID
     Dates: start: 20040705, end: 20040710
  2. LOVENOX [Suspect]
     Indication: PROPHYLAXIS
     Dosage: 30 MG BID
     Dates: start: 20040705, end: 20040710
  3. HYDROMORPHONE [Concomitant]

REACTIONS (3)
  - DIZZINESS [None]
  - HAEMATEMESIS [None]
  - PRURITUS GENERALISED [None]
